FAERS Safety Report 8107545-1 (Version None)
Quarter: 2012Q1

REPORT INFORMATION
  Report Type: 
  Country: None (occurrence: None)
  Receive Date: 20120202
  Receipt Date: 20120125
  Transmission Date: 20120608
  Serious: Yes (Other)
  Sender: FDA-Public Use
  Company Number: IN-ROXANE LABORATORIES, INC.-2012-RO-00546RO

PATIENT
  Age: 30 Year
  Sex: Female
  Weight: 63 kg

DRUGS (5)
  1. LIDOCAINE [Suspect]
     Indication: EPIDURAL ANAESTHESIA
     Dosage: 15 ML
     Route: 008
  2. FENTANYL CITRATE [Suspect]
     Indication: EPIDURAL ANAESTHESIA
     Dosage: 25 MCG
     Route: 037
  3. BUPIVACAINE HCL [Suspect]
     Dosage: 12 ML
     Route: 008
  4. FENTANYL CITRATE [Suspect]
     Dosage: 50 MCG
     Route: 008
  5. BUPIVACAINE HCL [Suspect]
     Indication: EPIDURAL ANAESTHESIA
     Dosage: 10 ML
     Route: 037

REACTIONS (1)
  - MONOPARESIS [None]
